FAERS Safety Report 14364829 (Version 5)
Quarter: 2024Q2

REPORT INFORMATION
  Report Type: Spontaneous
  Country: CZ (occurrence: CZ)
  Receive Date: 20180108
  Receipt Date: 20240426
  Transmission Date: 20240716
  Serious: No
  Sender: FDA-Public Use
  Company Number: CZ-MLMSERVICE-20171221-1011632-1

PATIENT
  Age: 22 Year
  Sex: Male

DRUGS (25)
  1. DEXAMETHASONE [Suspect]
     Active Substance: DEXAMETHASONE
     Indication: Blastic plasmacytoid dendritic cell neoplasia
     Dosage: 3 PROPHYLACTIC INTRATHECAL APPLICATIONS OF CHEMOTHERAPY
     Route: 037
     Dates: start: 201504, end: 2015
  2. DEXAMETHASONE [Suspect]
     Active Substance: DEXAMETHASONE
     Indication: Prophylactic chemotherapy
     Dosage: 1ST CONSOLIDATION TREATMENT
     Route: 065
     Dates: start: 201506, end: 2015
  3. DEXAMETHASONE [Suspect]
     Active Substance: DEXAMETHASONE
     Dosage: PROPHYLACTIC INTRATHECAL APPLICATIONS OF CHEMOTHERAPY
     Route: 037
     Dates: start: 201506, end: 2015
  4. METHOTREXATE [Suspect]
     Active Substance: METHOTREXATE
     Indication: Blastic plasmacytoid dendritic cell neoplasia
     Dosage: 3 PROPHYLACTIC INTRATHECAL APPLICATIONS OF CHEMOTHERAPY
     Route: 037
     Dates: start: 201504, end: 2015
  5. METHOTREXATE [Suspect]
     Active Substance: METHOTREXATE
     Dosage: HIGH-DOSE (1ST CONSOLIDATION TREATMENT )
     Route: 065
     Dates: start: 201506, end: 2015
  6. METHOTREXATE [Suspect]
     Active Substance: METHOTREXATE
     Dosage: PROPHYLACTIC INTRATHECAL APPLICATIONS OF CHEMOTHERAPY
     Route: 037
     Dates: start: 201506, end: 2015
  7. CYTARABINE [Suspect]
     Active Substance: CYTARABINE
     Indication: Blastic plasmacytoid dendritic cell neoplasia
     Dosage: 3 PROPHYLACTIC INTRATHECAL APPLICATIONS OF CHEMOTHERAPY
     Route: 037
     Dates: start: 201504, end: 2015
  8. CYTARABINE [Suspect]
     Active Substance: CYTARABINE
     Dosage: PHASE 2 INDUCTION CHEMOTHERAPY
     Route: 065
     Dates: start: 201504
  9. CYTARABINE [Suspect]
     Active Substance: CYTARABINE
     Dosage: HIGH-DOSE (1ST CONSOLIDATION)
     Route: 065
     Dates: start: 201506
  10. CYTARABINE [Suspect]
     Active Substance: CYTARABINE
     Dosage: PROPHYLACTIC INTRATHECAL APPLICATIONS OF CHEMOTHERAPY
     Route: 037
     Dates: start: 201506
  11. MERCAPTOPURINE [Suspect]
     Active Substance: MERCAPTOPURINE
     Indication: Blastic plasmacytoid dendritic cell neoplasia
     Dosage: PHASE 2 INDUCTION CHEMOTHERAPY
     Route: 065
     Dates: start: 201504, end: 2015
  12. CYCLOPHOSPHAMIDE [Suspect]
     Active Substance: CYCLOPHOSPHAMIDE
     Indication: Blastic plasmacytoid dendritic cell neoplasia
     Dosage: PHASE 2 INDUCTION CHEMOTHERAPY
     Route: 065
     Dates: start: 201504, end: 2015
  13. VINDESINE [Suspect]
     Active Substance: VINDESINE
     Indication: Blastic plasmacytoid dendritic cell neoplasia
     Dosage: 1ST CONSOLIDATION TREATMENT
     Route: 065
     Dates: start: 201506, end: 2015
  14. ETOPOSIDE [Suspect]
     Active Substance: ETOPOSIDE
     Indication: Blastic plasmacytoid dendritic cell neoplasia
     Dosage: 1ST CONSOLIDATION TREATMENT
     Route: 065
     Dates: start: 201506, end: 2015
  15. DEXAMETHASONE [Concomitant]
     Active Substance: DEXAMETHASONE
     Indication: Blastic plasmacytoid dendritic cell neoplasia
     Dosage: PREPHASE CORTICOSTEROIDS (FIRST CYCLE)
     Route: 065
     Dates: start: 201503, end: 2015
  16. DEXAMETHASONE [Concomitant]
     Active Substance: DEXAMETHASONE
     Indication: Acute lymphocytic leukaemia
     Dosage: PHASE 1 INDUCTION CHEMOTHERAPY
     Route: 065
     Dates: start: 201503, end: 2015
  17. DEXAMETHASONE [Concomitant]
     Active Substance: DEXAMETHASONE
     Indication: Prophylactic chemotherapy
     Dosage: SYSTEMIC PROPHYLACTIC CHEMOTHERAPY
     Route: 037
     Dates: start: 2015
  18. CYCLOPHOSPHAMIDE [Concomitant]
     Active Substance: CYCLOPHOSPHAMIDE
     Indication: Acute lymphocytic leukaemia
     Dosage: PHASE 1 INDUCTION CHEMOTHERAPY (FIRST CYCLE)
     Route: 065
     Dates: start: 201503
  19. VINCRISTINE [Concomitant]
     Active Substance: VINCRISTINE
     Indication: Acute lymphocytic leukaemia
     Dosage: PHASE 1 INDUCTION CHEMOTHERAPY (FIRST CYCLE)
     Route: 065
     Dates: start: 201503
  20. DAUNORUBICIN [Concomitant]
     Active Substance: DAUNORUBICIN
     Indication: Acute lymphocytic leukaemia
     Dosage: PHASE 1 INDUCTION CHEMOTHERAPY (FIRST CYCLE)
     Route: 065
     Dates: start: 201503
  21. PEGASPARGASE [Concomitant]
     Active Substance: PEGASPARGASE
     Indication: Acute lymphocytic leukaemia
     Dosage: PHASE 1 INDUCTION CHEMOTHERAPY (FIRST CYCLE)
     Route: 065
     Dates: start: 201503
  22. CYTARABINE [Concomitant]
     Active Substance: CYTARABINE
     Indication: Blastic plasmacytoid dendritic cell neoplasia
     Dosage: SYSTEMIC PROPHYLACTIC CHEMOTHERAPY (FIRST CYCLE)
     Route: 037
     Dates: start: 2015
  23. CYTARABINE [Concomitant]
     Active Substance: CYTARABINE
     Indication: Prophylactic chemotherapy
  24. METHOTREXATE [Concomitant]
     Active Substance: METHOTREXATE
     Indication: Blastic plasmacytoid dendritic cell neoplasia
     Dosage: SYSTEMIC PROPHYLACTIC CHEMOTHERAPY (FIRST CYCLE)
     Route: 037
     Dates: start: 2015
  25. METHOTREXATE [Concomitant]
     Active Substance: METHOTREXATE
     Indication: Prophylactic chemotherapy

REACTIONS (3)
  - Liver disorder [Recovering/Resolving]
  - Stomatitis [Recovered/Resolved]
  - Odynophagia [Unknown]

NARRATIVE: CASE EVENT DATE: 20150401
